FAERS Safety Report 11660848 (Version 1)
Quarter: 2015Q4

REPORT INFORMATION
  Report Type: Spontaneous
  Country: US (occurrence: US)
  Receive Date: 20151026
  Receipt Date: 20151026
  Transmission Date: 20160304
  Serious: No
  Sender: FDA-Public Use
  Company Number: US-MEDA-2011120080

PATIENT
  Age: 65 Year
  Sex: Male
  Weight: 82 kg

DRUGS (3)
  1. ASTEPRO [Suspect]
     Active Substance: AZELASTINE HYDROCHLORIDE
     Indication: RHINITIS ALLERGIC
     Dates: start: 201112
  2. UNSPECIFIED ASTHMA INHALER [Concomitant]
  3. HIGH CHOLESTEROL MEDICATION [Concomitant]
     Active Substance: UNSPECIFIED INGREDIENT

REACTIONS (1)
  - Headache [Not Recovered/Not Resolved]

NARRATIVE: CASE EVENT DATE: 201112
